FAERS Safety Report 6218496-1 (Version None)
Quarter: 2009Q2

REPORT INFORMATION
  Report Type: 
  Country: None (occurrence: None)
  Receive Date: 20090604
  Receipt Date: 20090604
  Transmission Date: 20091009
  Serious: Yes (Hospitalization, Other)
  Sender: FDA-Public Use
  Company Number: None

PATIENT
  Age: 49 Year
  Sex: Female
  Weight: 61.2356 kg

DRUGS (2)
  1. SAVELLA [Suspect]
     Indication: FIBROMYALGIA
     Dosage: STARTER PACK 2 TIMES DAILY PO
     Route: 048
     Dates: start: 20090506, end: 20090512
  2. . [Concomitant]

REACTIONS (1)
  - CONVULSION [None]
